FAERS Safety Report 7008502-9 (Version None)
Quarter: 2010Q3

REPORT INFORMATION
  Report Type: 
  Country: None (occurrence: None)
  Receive Date: 20100922
  Receipt Date: 20100819
  Transmission Date: 20110219
  Serious: No
  Sender: FDA-Public Use
  Company Number: US-PFIZER INC-2010104745

PATIENT
  Sex: Female
  Weight: 90.703 kg

DRUGS (8)
  1. LATANOPROST [Suspect]
     Indication: GLAUCOMA
     Dosage: UNK
  2. XALATAN [Suspect]
     Indication: GLAUCOMA
     Dosage: UNK
  3. LIPITOR [Concomitant]
     Dosage: UNK
  4. LISINOPRIL [Concomitant]
     Dosage: UNK
  5. COLCHICINE [Concomitant]
     Dosage: UNK
  6. FEXOFENADINE [Concomitant]
     Dosage: UNK
  7. HYDROCHLOROTHIAZIDE [Concomitant]
     Dosage: UNK
  8. CALCIUM [Concomitant]
     Dosage: UNK

REACTIONS (2)
  - EYE INFECTION [None]
  - PRURITUS [None]
